FAERS Safety Report 12774231 (Version 1)
Quarter: 2016Q3

REPORT INFORMATION
  Report Type: Spontaneous
  Country: US (occurrence: US)
  Receive Date: 20160923
  Receipt Date: 20160923
  Transmission Date: 20161109
  Serious: No
  Sender: FDA-Public Use
  Company Number: US-PFIZER INC-2016372388

PATIENT
  Sex: Male

DRUGS (7)
  1. RANITIDINE. [Concomitant]
     Active Substance: RANITIDINE
  2. LIPITOR [Suspect]
     Active Substance: ATORVASTATIN CALCIUM
     Indication: BLOOD CHOLESTEROL
     Dosage: UNK
     Dates: start: 1995, end: 1998
  3. COREG [Concomitant]
     Active Substance: CARVEDILOL
  4. ENALAPRIL [Concomitant]
     Active Substance: ENALAPRIL
  5. WARFARIN [Concomitant]
     Active Substance: WARFARIN
  6. DIGOXIN. [Concomitant]
     Active Substance: DIGOXIN
  7. TIKOSYN [Concomitant]
     Active Substance: DOFETILIDE

REACTIONS (1)
  - Muscle spasms [Unknown]
